FAERS Safety Report 13622718 (Version 2)
Quarter: 2017Q3

REPORT INFORMATION
  Report Type: Spontaneous
  Country: FR (occurrence: FR)
  Receive Date: 20170607
  Receipt Date: 20170710
  Transmission Date: 20171127
  Serious: Yes (Hospitalization, Other)
  Sender: FDA-Public Use
  Company Number: FR-VIIV HEALTHCARE LIMITED-FR2017GSK085592

PATIENT
  Age: 61 Year
  Sex: Female

DRUGS (27)
  1. LAROSCORBINE [Suspect]
     Active Substance: ASCORBIC ACID
     Indication: FATIGUE
     Dosage: UNK
     Route: 042
     Dates: start: 20170127, end: 20170205
  2. ANSATIPINE [Suspect]
     Active Substance: RIFABUTIN
     Indication: ATYPICAL MYCOBACTERIAL INFECTION
     Dosage: UNK
     Route: 048
     Dates: start: 20170110
  3. LEDERFOLINE [Suspect]
     Active Substance: LEUCOVORIN CALCIUM
     Indication: PRODUCT USED FOR UNKNOWN INDICATION
     Dosage: UNK
     Route: 048
     Dates: start: 201611
  4. MYAMBUTOL [Suspect]
     Active Substance: ETHAMBUTOL HYDROCHLORIDE
     Indication: ATYPICAL MYCOBACTERIAL INFECTION
     Dosage: UNK
     Route: 048
     Dates: start: 20161008
  5. AMLOR [Concomitant]
     Active Substance: AMLODIPINE BESYLATE
     Route: 048
  6. LEVOTHYROX [Concomitant]
     Active Substance: LEVOTHYROXINE
     Indication: HYPOTHYROIDISM
     Route: 048
  7. RIMIFON [Concomitant]
     Active Substance: ISONIAZID
     Indication: ATYPICAL MYCOBACTERIAL INFECTION
     Dosage: UNK
     Route: 048
     Dates: start: 20161008, end: 20161020
  8. DALACINE [Suspect]
     Active Substance: CLINDAMYCIN HYDROCHLORIDE
     Indication: CEREBRAL TOXOPLASMOSIS
     Dosage: UNK
     Route: 042
     Dates: start: 20170102
  9. ZINC. [Suspect]
     Active Substance: ZINC
     Indication: PRODUCT USED FOR UNKNOWN INDICATION
     Dosage: UNK
     Route: 042
     Dates: start: 20170127, end: 20170130
  10. TIORFAN [Suspect]
     Active Substance: RACECADOTRIL
     Indication: PRODUCT USED FOR UNKNOWN INDICATION
     Dosage: UNK
     Route: 048
     Dates: start: 201610
  11. MALOCIDE [Suspect]
     Active Substance: PYRIMETHAMINE
     Indication: CEREBRAL TOXOPLASMOSIS
     Dosage: UNK
     Route: 048
     Dates: start: 20170102
  12. PANTOPRAZOLE [Suspect]
     Active Substance: PANTOPRAZOLE
     Indication: PRODUCT USED FOR UNKNOWN INDICATION
     Dosage: UNK
     Route: 048
     Dates: start: 20161001
  13. BACTRIM [Concomitant]
     Active Substance: SULFAMETHOXAZOLE\TRIMETHOPRIM
     Indication: ANTIBIOTIC PROPHYLAXIS
     Dosage: UNK
     Route: 048
     Dates: start: 20160930, end: 20161009
  14. TRUVADA [Concomitant]
     Active Substance: EMTRICITABINE\TENOFOVIR DISOPROXIL FUMARATE
     Indication: HIV INFECTION
     Dosage: UNK
     Route: 048
     Dates: start: 201610, end: 20161228
  15. ROVALCYTE [Suspect]
     Active Substance: VALGANCICLOVIR HYDROCHLORIDE
     Indication: HERPES SIMPLEX
     Dosage: UNK
     Route: 048
     Dates: start: 20161002
  16. ZOPHREN [Suspect]
     Active Substance: ONDANSETRON
     Indication: PRODUCT USED FOR UNKNOWN INDICATION
     Dosage: UNK
     Route: 048
     Dates: start: 201611
  17. ISENTRESS [Suspect]
     Active Substance: RALTEGRAVIR POTASSIUM
     Indication: PRODUCT USED FOR UNKNOWN INDICATION
     Dosage: UNK
     Route: 048
     Dates: start: 20161008
  18. DAPTOMYCINE [Concomitant]
     Active Substance: DAPTOMYCIN
     Dosage: UNK
     Route: 042
     Dates: start: 20161227, end: 20170105
  19. ZECLAR [Suspect]
     Active Substance: CLARITHROMYCIN
     Indication: MYCOBACTERIAL INFECTION
     Dosage: UNK
     Route: 048
     Dates: start: 20161008
  20. PREZISTA [Concomitant]
     Active Substance: DARUNAVIR ETHANOLATE
     Indication: HIV INFECTION
     Dosage: UNK
     Route: 048
     Dates: start: 20161008, end: 20170109
  21. KIVEXA [Suspect]
     Active Substance: ABACAVIR SULFATE\LAMIVUDINE
     Indication: HIV INFECTION
     Dosage: UNK
     Route: 048
     Dates: start: 20161229
  22. WELLVONE [Suspect]
     Active Substance: ATOVAQUONE
     Indication: ANTIBIOTIC PROPHYLAXIS
     Dosage: UNK
     Route: 048
     Dates: start: 20161009
  23. SELENIUM SULFIDE. [Suspect]
     Active Substance: SELENIUM SULFIDE
     Indication: PRODUCT USED FOR UNKNOWN INDICATION
     Dosage: UNK
     Route: 042
     Dates: start: 20170127, end: 20170201
  24. CEFAZOLINE [Concomitant]
     Active Substance: CEFAZOLIN SODIUM
     Dosage: UNK
     Route: 042
     Dates: start: 20170105, end: 20170105
  25. NORVIR [Concomitant]
     Active Substance: RITONAVIR
     Indication: HIV INFECTION
     Dosage: UNK
     Route: 048
     Dates: start: 20161008, end: 20170109
  26. KEPPRA [Concomitant]
     Active Substance: LEVETIRACETAM
     Indication: DYSKINESIA
     Dosage: UNK
     Route: 048
     Dates: start: 20170103, end: 20170117
  27. LOVENOX [Concomitant]
     Active Substance: ENOXAPARIN SODIUM
     Dosage: UNK
     Route: 058
     Dates: start: 20170103, end: 20170103

REACTIONS (3)
  - Rash [Recovering/Resolving]
  - Toxic skin eruption [Recovering/Resolving]
  - Liver injury [Recovered/Resolved]

NARRATIVE: CASE EVENT DATE: 201702
